FAERS Safety Report 9242649 (Version 1)
Quarter: 2013Q2

REPORT INFORMATION
  Report Type: Spontaneous
  Country: US (occurrence: US)
  Receive Date: 20130419
  Receipt Date: 20130419
  Transmission Date: 20140414
  Serious: Yes (Hospitalization, Other)
  Sender: FDA-Public Use
  Company Number: US-JNJFOC-20130407659

PATIENT
  Age: 17 Year
  Sex: Female
  Weight: 56.7 kg

DRUGS (1)
  1. PANCREAZE [Suspect]
     Indication: CYSTIC FIBROSIS
     Dosage: 6 CAPSULES WITH MEALS
     Route: 048

REACTIONS (7)
  - Lung transplant [Unknown]
  - Cystic fibrosis [Unknown]
  - Weight decreased [Not Recovered/Not Resolved]
  - Adverse event [Unknown]
  - Impaired gastric emptying [Unknown]
  - Dyspnoea [Recovered/Resolved]
  - Wrong technique in drug usage process [Not Recovered/Not Resolved]
